FAERS Safety Report 25831222 (Version 2)
Quarter: 2025Q3

REPORT INFORMATION
  Report Type: Spontaneous
  Country: CH (occurrence: CH)
  Receive Date: 20250922
  Receipt Date: 20250930
  Transmission Date: 20251020
  Serious: Yes (Other)
  Sender: PFIZER
  Company Number: None

PATIENT
  Age: 56 Year
  Sex: Male

DRUGS (4)
  1. PANTOZOL [Suspect]
     Active Substance: PANTOPRAZOLE SODIUM
     Indication: Prophylaxis against gastrointestinal ulcer
     Route: 048
  2. METAMIZOLE [Suspect]
     Active Substance: METAMIZOLE
     Indication: Cholecystectomy
     Dosage: 500 MILLIGRAM, Q6HR
     Route: 048
     Dates: start: 20250710, end: 20250729
  3. IBUPROFEN [Suspect]
     Active Substance: IBUPROFEN
     Indication: Cholecystectomy
     Dosage: 400 MILLIGRAM, Q8HR
     Route: 048
     Dates: start: 20250710, end: 20250729
  4. ROCEPHIN [Concomitant]
     Active Substance: CEFTRIAXONE SODIUM
     Route: 042
     Dates: end: 20250710

REACTIONS (2)
  - Drug-induced liver injury [Recovering/Resolving]
  - Urticaria [Recovering/Resolving]

NARRATIVE: CASE EVENT DATE: 20250728
